FAERS Safety Report 5309009-7 (Version None)
Quarter: 2007Q2

REPORT INFORMATION
  Report Type: 
  Country: None (occurrence: None)
  Receive Date: 20070426
  Receipt Date: 20070419
  Transmission Date: 20071010
  Serious: Yes (Other)
  Sender: FDA-Public Use
  Company Number: PFIZER INC-2007031844

PATIENT
  Sex: Male
  Weight: 78 kg

DRUGS (4)
  1. ZOLOFT [Suspect]
     Indication: DEPRESSION
     Route: 048
     Dates: start: 20020101
  2. LORAZEPAM [Concomitant]
  3. ALL OTHER THERAPEUTIC PRODUCTS [Concomitant]
  4. VITAMINS [Concomitant]

REACTIONS (4)
  - ANXIETY [None]
  - CHEST PAIN [None]
  - HYPERHIDROSIS [None]
  - THROAT TIGHTNESS [None]
